FAERS Safety Report 8464121-9 (Version None)
Quarter: 2012Q2

REPORT INFORMATION
  Report Type: 
  Country: None (occurrence: None)
  Receive Date: 20120625
  Receipt Date: 20120615
  Transmission Date: 20120825
  Serious: Yes (Hospitalization)
  Sender: FDA-Public Use
  Company Number: JP-ABBOTT-11P-087-0859266-00

PATIENT
  Sex: Female
  Weight: 47.2 kg

DRUGS (45)
  1. ASPIRIN [Concomitant]
     Indication: LACUNAR INFARCTION
     Route: 048
  2. CALCIUM L-ASPARTATE HYDRATE [Concomitant]
     Indication: PRODUCT USED FOR UNKNOWN INDICATION
     Dosage: 2 DOSAGE FORMS DAILY
     Route: 048
  3. VITAMIN B COMPLEX CAP [Concomitant]
     Indication: VITAMIN SUPPLEMENTATION
     Dosage: 10 MILLILITER DAILY
     Dates: start: 20100416, end: 20100501
  4. ETIZOLAM [Concomitant]
     Indication: PRODUCT USED FOR UNKNOWN INDICATION
     Dosage: 0.5 MG DAILY
     Route: 048
     Dates: start: 20100215, end: 20100408
  5. LACTATED RINGER'S [Concomitant]
     Indication: FLUID REPLACEMENT
     Dosage: 500 MILLILITER DAILY
     Dates: start: 20100326, end: 20100326
  6. SODIUM CHLORIDE/POTASSIUM CHLORIDE/L-SODIUM LACTATE/GLUCOSE [Concomitant]
     Dosage: 200 MILLILITER DAILY
     Dates: start: 20100409, end: 20100412
  7. ANTIBIOTICS-RESISTANT LACTIC ACID BACTERIAE [Concomitant]
     Indication: ADVERSE EVENT
     Route: 048
     Dates: start: 20100414, end: 20100520
  8. DOPAMINE HCL [Concomitant]
     Indication: CARDIAC FAILURE
  9. DOPAMINE HCL [Concomitant]
  10. ALBUMIN (HUMAN) [Concomitant]
     Indication: CARDIAC FAILURE
  11. OMEPRAZOLE [Concomitant]
     Indication: ULCER
     Dosage: 20 MG DAILY
     Route: 048
     Dates: end: 20100414
  12. REBAMIPIDE [Concomitant]
     Indication: PRODUCT USED FOR UNKNOWN INDICATION
     Dosage: 200 MG DAILY
  13. FERROUS FUMARATE [Concomitant]
     Indication: PRODUCT USED FOR UNKNOWN INDICATION
     Dosage: 305 MG DAILY
     Dates: start: 20091124
  14. LOSARTAN POTASSIUM [Concomitant]
     Indication: PRODUCT USED FOR UNKNOWN INDICATION
     Dosage: 25 MG DAILY
  15. VITAMIN B COMPLEX CAP [Concomitant]
     Indication: PROPHYLAXIS
     Dosage: 3 DOSAGE FORMS DAILY
     Route: 048
  16. VITAMIN B COMPLEX CAP [Concomitant]
     Indication: ADVERSE EVENT
  17. LACTATED RINGER'S [Concomitant]
     Dosage: 500 MILLILITER DAILY
     Dates: start: 20100413, end: 20100501
  18. SODIUM CHLORIDE/POTASSIUM CHLORIDE/L-SODIUM LACTATE/GLUCOSE [Concomitant]
     Indication: FLUID REPLACEMENT
     Dosage: 500 MILLILITER DAILY
     Dates: start: 20100326, end: 20100401
  19. ANTIBIOTICS-RESISTANT LACTIC ACID BACTERIAE [Concomitant]
     Indication: PROPHYLAXIS
     Route: 048
     Dates: start: 20100402, end: 20100406
  20. CARPERITIDE [Concomitant]
     Indication: CARDIAC FAILURE
  21. PROGRAF [Suspect]
     Dosage: 1 MG DAILY
     Route: 048
     Dates: start: 20100531
  22. OMEPRAZOLE [Concomitant]
     Indication: PROPHYLAXIS
     Dosage: 20 MG DAILY
     Route: 048
     Dates: start: 20100507
  23. FUROSEMIDE [Concomitant]
     Dosage: 10 MG DAILY
     Route: 048
     Dates: start: 20091027, end: 20100501
  24. PROGRAF [Suspect]
     Indication: RHEUMATOID ARTHRITIS
     Dosage: 2 MG DAILY
     Route: 048
     Dates: end: 20100325
  25. PROGRAF [Suspect]
     Dosage: 2 MG DAILY
     Route: 048
     Dates: start: 20100331, end: 20100408
  26. METHYLPREDNISOLONE [Concomitant]
     Indication: RHEUMATOID ARTHRITIS
     Dosage: 2 MG X 1
     Route: 048
  27. OMEPRAZOLE SODIUM [Concomitant]
     Dosage: 40 MG DAILY PLUS SALINE 20 ML
     Route: 050
     Dates: start: 20100416, end: 20100422
  28. SODIUM POLYSTYRENE SULFONATE [Concomitant]
     Indication: RENAL FAILURE
  29. HUMIRA [Suspect]
     Indication: RHEUMATOID ARTHRITIS
     Route: 058
     Dates: start: 20090805, end: 20100315
  30. CELECOXIB [Concomitant]
     Indication: RHEUMATOID ARTHRITIS
     Dosage: 400 MG DAILY
     Route: 048
     Dates: end: 20100711
  31. CELECOXIB [Concomitant]
     Dosage: 200 MG DAILY
     Route: 048
     Dates: end: 20100711
  32. ISONIAZID [Concomitant]
     Indication: ANTIBIOTIC PROPHYLAXIS
     Route: 048
     Dates: end: 20100711
  33. ZOLPIDEM TARTRATE [Concomitant]
     Dosage: 0.5 MG DAILY
     Route: 048
     Dates: start: 20100409, end: 20100616
  34. FUROSEMIDE [Concomitant]
     Indication: CARDIAC FAILURE
     Dosage: 20 MG DAILY
     Dates: start: 20090930, end: 20091026
  35. OMEPRAZOLE SODIUM [Concomitant]
     Indication: PRODUCT USED FOR UNKNOWN INDICATION
     Dosage: 20 MG DAILY PLUS SALINE 20 ML
     Route: 050
     Dates: start: 20100415, end: 20100415
  36. OMEPRAZOLE SODIUM [Concomitant]
     Dosage: 20 MG DAILY PLUS SALINE 20 ML
     Route: 050
     Dates: start: 20100423, end: 20100501
  37. ISOSORBIDE DINITRATE [Concomitant]
     Indication: CARDIAC FAILURE
  38. ALENDRONATE SODIUM [Concomitant]
     Indication: OSTEOPOROSIS
     Route: 048
  39. CLARITHROMYCIN [Concomitant]
     Indication: BRONCHIOLITIS
     Route: 048
  40. ZOLPIDEM TARTRATE [Concomitant]
     Indication: PRODUCT USED FOR UNKNOWN INDICATION
     Dosage: 5 MG DAILY
     Dates: start: 20100409, end: 20100616
  41. SODIUM CHLORIDE/L-SODIUM LACTATE/GLUCOSE [Concomitant]
     Dosage: 500 MILLILITER DAILY
     Dates: start: 20100415, end: 20100415
  42. ACETAZOLAMIDE [Concomitant]
     Indication: CARDIAC FAILURE
  43. ALFACALCIDOL [Concomitant]
     Indication: PRODUCT USED FOR UNKNOWN INDICATION
     Dosage: 0.5 MG DAILY
  44. SODIUM CHLORIDE/POTASSIUM CHLORIDE/L-SODIUM LACTATE/GLUCOSE [Concomitant]
     Dosage: 500 MILLILITER DAILY
     Dates: start: 20100416, end: 20100501
  45. SODIUM CHLORIDE/L-SODIUM LACTATE/GLUCOSE [Concomitant]
     Indication: FLUID REPLACEMENT
     Dosage: 500 MILLILITER DAILY
     Dates: start: 20100409, end: 20100409

REACTIONS (6)
  - BRONCHITIS [None]
  - BLOOD BETA-D-GLUCAN INCREASED [None]
  - SPUTUM PURULENT [None]
  - DIZZINESS [None]
  - SPUTUM INCREASED [None]
  - DECREASED APPETITE [None]
